FAERS Safety Report 6136431-1 (Version None)
Quarter: 2009Q1

REPORT INFORMATION
  Report Type: 
  Country: None (occurrence: None)
  Receive Date: 20090325
  Receipt Date: 20090311
  Transmission Date: 20090719
  Serious: Yes (Hospitalization, Other)
  Sender: FDA-Public Use
  Company Number: 2009EN000046

PATIENT
  Age: 23 Year
  Sex: Male
  Weight: 52.8 kg

DRUGS (16)
  1. ONCASPAR [Suspect]
     Indication: PRECURSOR B-LYMPHOBLASTIC LYMPHOMA
     Dosage: 4275 IU; IV
     Route: 042
     Dates: start: 20081220, end: 20090304
  2. VINCRISTINE [Suspect]
     Indication: PRECURSOR B-LYMPHOBLASTIC LYMPHOMA
     Dosage: 2 MG; IV
     Route: 042
     Dates: end: 20090304
  3. METHOTREXATE [Suspect]
     Indication: PRECURSOR B-LYMPHOBLASTIC LYMPHOMA
     Dosage: INTH
     Route: 037
     Dates: end: 20090211
  4. MERCAPTOPURINE [Concomitant]
  5. ACYCLOVIR [Concomitant]
  6. BACTRIM DS [Concomitant]
  7. LEVAQUIN [Concomitant]
  8. PENICILLIN V POTASSIUM [Concomitant]
  9. COUMADIN [Concomitant]
  10. CLOTRIMAZOLE [Concomitant]
  11. CYTOXAN [Concomitant]
  12. ARA-C [Concomitant]
  13. SENNA-S [Concomitant]
  14. OXYCODONE HCL [Concomitant]
  15. ATIVAN [Concomitant]
  16. ZOFRAN [Concomitant]

REACTIONS (10)
  - ANAPHYLACTIC REACTION [None]
  - ASPARTATE AMINOTRANSFERASE INCREASED [None]
  - CARDIO-RESPIRATORY ARREST [None]
  - EPISTAXIS [None]
  - HEADACHE [None]
  - HYPERGLYCAEMIA [None]
  - LIVER FUNCTION TEST ABNORMAL [None]
  - PANCYTOPENIA [None]
  - PERIPHERAL MOTOR NEUROPATHY [None]
  - PERIPHERAL SENSORY NEUROPATHY [None]
